FAERS Safety Report 12739094 (Version 7)
Quarter: 2017Q4

REPORT INFORMATION
  Report Type: Report from Study
  Country: None (occurrence: NL)
  Receive Date: 20160913
  Receipt Date: 20171211
  Transmission Date: 20180320
  Serious: Yes (Hospitalization, Other)
  Sender: FDA-Public Use
  Company Number: NL-ABBVIE-16P-114-1590928-00

PATIENT
  Sex: Female
  Weight: 61 kg

DRUGS (4)
  1. DUODOPA [Suspect]
     Active Substance: CARBIDOPA\LEVODOPA
     Indication: PARKINSON^S DISEASE
     Dosage: MD 10, CD 2.8, ED 1.0
     Route: 050
     Dates: start: 20131107
  2. LEVODOPA/CARBIDOPA [Concomitant]
     Active Substance: CARBIDOPA\LEVODOPA
     Indication: PRODUCT USED FOR UNKNOWN INDICATION
  3. OXAZEPAM. [Suspect]
     Active Substance: OXAZEPAM
     Indication: PRODUCT USED FOR UNKNOWN INDICATION
     Route: 065
  4. AMITRIPTYLINE [Concomitant]
     Active Substance: AMITRIPTYLINE
     Indication: PRODUCT USED FOR UNKNOWN INDICATION

REACTIONS (38)
  - Panic reaction [Not Recovered/Not Resolved]
  - Dyspnoea [Unknown]
  - Stoma site rash [Unknown]
  - Stoma site reaction [Not Recovered/Not Resolved]
  - Weight decreased [Not Recovered/Not Resolved]
  - Somnolence [Unknown]
  - Stoma site inflammation [Unknown]
  - Movement disorder [Not Recovered/Not Resolved]
  - Chest discomfort [Unknown]
  - Sleep disorder [Recovered/Resolved]
  - Dysstasia [Not Recovered/Not Resolved]
  - Wheezing [Not Recovered/Not Resolved]
  - Musculoskeletal stiffness [Not Recovered/Not Resolved]
  - Fall [Not Recovered/Not Resolved]
  - Abdominal discomfort [Unknown]
  - Insomnia [Recovered/Resolved]
  - On and off phenomenon [Not Recovered/Not Resolved]
  - Drug ineffective [Not Recovered/Not Resolved]
  - Stoma site erythema [Recovered/Resolved]
  - Stoma site odour [Recovered/Resolved]
  - Nocturia [Not Recovered/Not Resolved]
  - Hyperventilation [Not Recovered/Not Resolved]
  - Freezing phenomenon [Unknown]
  - Hypoaesthesia [Unknown]
  - Stoma site discharge [Not Recovered/Not Resolved]
  - Fibroma [Not Recovered/Not Resolved]
  - Dyskinesia [Not Recovered/Not Resolved]
  - Sleep disorder [Recovering/Resolving]
  - Dysuria [Not Recovered/Not Resolved]
  - Weight decreased [Recovered/Resolved]
  - Apnoea [Not Recovered/Not Resolved]
  - Cardiac disorder [Not Recovered/Not Resolved]
  - Balance disorder [Unknown]
  - Abnormal dreams [Not Recovered/Not Resolved]
  - Dyspnoea [Not Recovered/Not Resolved]
  - Fear of falling [Recovered/Resolved]
  - Haemorrhage [Not Recovered/Not Resolved]
  - Stoma site pain [Unknown]

NARRATIVE: CASE EVENT DATE: 2016
